FAERS Safety Report 9492412 (Version 1)
Quarter: 2013Q3

REPORT INFORMATION
  Report Type: Other
  Country: TW (occurrence: TW)
  Receive Date: 20130830
  Receipt Date: 20130830
  Transmission Date: 20140515
  Serious: Yes (Hospitalization)
  Sender: FDA-Public Use
  Company Number: TW-BRISTOL-MYERS SQUIBB COMPANY-19204197

PATIENT
  Age: 21 Year
  Sex: Male

DRUGS (3)
  1. ENTECAVIR [Suspect]
     Indication: HEPATITIS B
  2. ESCITALOPRAM [Concomitant]
     Indication: MAJOR DEPRESSION
     Dosage: DOSE INCREASED TO 20MG/DAY.
  3. LORAZEPAM [Concomitant]
     Indication: MAJOR DEPRESSION

REACTIONS (1)
  - Depression [Recovered/Resolved]
